FAERS Safety Report 6921680-2 (Version None)
Quarter: 2010Q3

REPORT INFORMATION
  Report Type: 
  Country: None (occurrence: None)
  Receive Date: 20100812
  Receipt Date: 20100802
  Transmission Date: 20110219
  Serious: Yes (Hospitalization, Other)
  Sender: FDA-Public Use
  Company Number: US-WYE-H16146610

PATIENT
  Sex: Female
  Weight: 63.56 kg

DRUGS (9)
  1. PREMARIN [Suspect]
     Indication: HORMONE REPLACEMENT THERAPY
     Route: 048
     Dates: start: 19970801, end: 20091001
  2. PREMARIN [Suspect]
     Dosage: 0.3MG
  3. PREMARIN [Suspect]
     Dosage: EVERY OTHER DAY
     Route: 048
  4. PREMARIN [Suspect]
     Route: 048
     Dates: start: 20100301
  5. MAXZIDE [Suspect]
     Indication: FLUID RETENTION
     Dosage: 75/50
     Route: 065
  6. ADVIL LIQUI-GELS [Concomitant]
     Indication: PRODUCT USED FOR UNKNOWN INDICATION
     Dosage: UNKNOWN
     Route: 065
  7. VITAMIN D [Concomitant]
     Indication: PRODUCT USED FOR UNKNOWN INDICATION
     Dosage: 50,000 UNITS
     Dates: start: 20100401
  8. VALIUM [Concomitant]
     Indication: PRODUCT USED FOR UNKNOWN INDICATION
     Dosage: UNKNOWN
     Route: 065
  9. XANAX [Concomitant]
     Indication: PRODUCT USED FOR UNKNOWN INDICATION
     Dosage: UNKNOWN
     Route: 065

REACTIONS (18)
  - AFFECT LABILITY [None]
  - ANAEMIA [None]
  - ARTHRALGIA [None]
  - ASTHENIA [None]
  - BLOOD POTASSIUM DECREASED [None]
  - BLOOD SODIUM DECREASED [None]
  - BONE PAIN [None]
  - CONFUSIONAL STATE [None]
  - DRUG WITHDRAWAL SYNDROME [None]
  - DYSGEUSIA [None]
  - FEELING ABNORMAL [None]
  - FLUID RETENTION [None]
  - HAEMORRHOID OPERATION [None]
  - HIP ARTHROPLASTY [None]
  - JOINT SWELLING [None]
  - MALAISE [None]
  - UNEVALUABLE EVENT [None]
  - VITAMIN D DEFICIENCY [None]
